FAERS Safety Report 5672707-X (Version None)
Quarter: 2008Q1

REPORT INFORMATION
  Report Type: 
  Country: None (occurrence: None)
  Receive Date: 20080319
  Receipt Date: 20080117
  Transmission Date: 20080703
  Serious: No
  Sender: FDA-Public Use
  Company Number: US-KINGPHARMUSA00001-K200800063

PATIENT

DRUGS (4)
  1. ALTACE [Suspect]
     Indication: HYPERTENSION
     Dosage: 10 MG, QD
     Route: 048
     Dates: start: 20070101
  2. TRICOR      /00499301/ [Concomitant]
     Indication: HYPERCHOLESTEROLAEMIA
  3. LIPITOR [Concomitant]
     Indication: HYPERCHOLESTEROLAEMIA
  4. GLYBURIDE AND METFORMIN HCL [Concomitant]
     Indication: DIABETES MELLITUS

REACTIONS (2)
  - DRUG INEFFECTIVE [None]
  - TINNITUS [None]
